FAERS Safety Report 9281029 (Version 1)
Quarter: 2013Q2

REPORT INFORMATION
  Report Type: Spontaneous
  Country: None (occurrence: None)
  Receive Date: 20130508
  Receipt Date: 20130508
  Transmission Date: 20140414
  Serious: No
  Sender: FDA-Public Use
  Company Number: None

PATIENT
  Age: 51 Year
  Sex: Male

DRUGS (1)
  1. ENBREL 50 MG [Suspect]
     Dosage: 50 MG WEEKLY SQ
     Route: 058
     Dates: start: 20120225, end: 20130410

REACTIONS (1)
  - Tuberculosis [None]
